FAERS Safety Report 18586478 (Version 2)
Quarter: 2021Q1

REPORT INFORMATION
  Report Type: Report from Study
  Country: US (occurrence: US)
  Receive Date: 20201207
  Receipt Date: 20210113
  Transmission Date: 20210419
  Serious: Yes (Death, Hospitalization)
  Sender: FDA-Public Use
  Company Number: US-CELGENEUS-USA-20201107258

PATIENT
  Age: 76 Year
  Sex: Male
  Weight: 65.4 kg

DRUGS (22)
  1. GEMCITABINE. [Suspect]
     Active Substance: GEMCITABINE
     Indication: PANCREATIC CARCINOMA
     Dosage: 1400 MILLIGRAM
     Route: 041
     Dates: start: 20201008
  2. AMIODARONE [Concomitant]
     Active Substance: AMIODARONE
     Indication: ATRIAL FIBRILLATION
     Dosage: 360 MILLIGRAM
     Route: 041
     Dates: start: 20201127, end: 20201128
  3. EPINEPHRINE. [Concomitant]
     Active Substance: EPINEPHRINE
     Indication: HYPOTENSION
     Route: 041
     Dates: start: 20201128, end: 20201128
  4. ZOSYN [Concomitant]
     Active Substance: PIPERACILLIN SODIUM\TAZOBACTAM SODIUM
     Indication: VIRAEMIA
     Dosage: 3.375 GRAM
     Route: 041
     Dates: start: 20201125, end: 20201125
  5. ZOSYN [Concomitant]
     Active Substance: PIPERACILLIN SODIUM\TAZOBACTAM SODIUM
     Dosage: 13.5 GRAM
     Route: 041
     Dates: start: 20201126, end: 20201128
  6. ALBUMIN [Concomitant]
     Active Substance: ALBUMIN HUMAN
     Indication: HYPOALBUMINAEMIA
     Route: 041
     Dates: start: 20201127, end: 20201127
  7. VANCOMYCIN [Concomitant]
     Active Substance: VANCOMYCIN
     Indication: SEPSIS
     Dosage: 1000 MILLIGRAM
     Route: 041
     Dates: start: 20201126, end: 20201128
  8. DEXAMETHASONE. [Concomitant]
     Active Substance: DEXAMETHASONE
     Indication: VIRAEMIA
     Dosage: 10 MILLIGRAM
     Route: 041
     Dates: start: 20201125, end: 20201128
  9. ABRAXANE [Suspect]
     Active Substance: PACLITAXEL
     Indication: PANCREATIC CARCINOMA
     Dosage: 179 MILLIGRAM
     Route: 041
     Dates: start: 20201008
  10. CISPLATIN. [Suspect]
     Active Substance: CISPLATIN
     Indication: PANCREATIC CARCINOMA
     Dosage: 45 MILLIGRAM
     Route: 041
     Dates: start: 20201008
  11. METOPROLOL. [Concomitant]
     Active Substance: METOPROLOL
     Indication: TACHYCARDIA
     Route: 041
     Dates: start: 20201126, end: 20201128
  12. VASOPRESSIN. [Concomitant]
     Active Substance: VASOPRESSIN
     Indication: HYPOTENSION
     Route: 041
     Dates: start: 20201127, end: 20201128
  13. FENTANYL. [Concomitant]
     Active Substance: FENTANYL
     Indication: ENDOTRACHEAL INTUBATION
     Dosage: 50 MCG/ML
     Route: 041
     Dates: start: 20201128, end: 20201128
  14. ASPIRIN. [Concomitant]
     Active Substance: ASPIRIN
     Indication: DISSEMINATED INTRAVASCULAR COAGULATION
     Dosage: 325 MILLIGRAM
     Route: 048
     Dates: start: 20201126, end: 20201128
  15. LOVENOX [Concomitant]
     Active Substance: ENOXAPARIN SODIUM
     Indication: MYOCARDIAL INFARCTION
     Dosage: 120 MILLIGRAM
     Route: 058
     Dates: start: 20201126, end: 20201127
  16. MAGNESIUM OXIDE. [Concomitant]
     Active Substance: MAGNESIUM OXIDE
     Indication: HYPOMAGNESAEMIA
     Dosage: 800 MILLIGRAM
     Route: 048
     Dates: start: 20201126, end: 20201127
  17. VERSED [Concomitant]
     Active Substance: MIDAZOLAM HYDROCHLORIDE
     Indication: ENDOTRACHEAL INTUBATION
     Route: 041
     Dates: start: 20201128, end: 20201128
  18. LASIX [Concomitant]
     Active Substance: FUROSEMIDE
     Indication: CARDIAC FAILURE CONGESTIVE
     Dosage: 20 MILLIGRAM
     Route: 041
     Dates: start: 20201126, end: 20201126
  19. NOREPINEPHRINE. [Concomitant]
     Active Substance: NOREPINEPHRINE
     Indication: HYPOTENSION
     Route: 041
     Dates: start: 20201127, end: 20201128
  20. MELATONIN [Concomitant]
     Active Substance: MELATONIN
     Indication: INSOMNIA
     Dosage: 3 MILLIGRAM
     Route: 048
     Dates: start: 20201127, end: 20201127
  21. PHENYLEPHRINE [Concomitant]
     Active Substance: PHENYLEPHRINE HYDROCHLORIDE
     Indication: HYPOTENSION
     Route: 041
     Dates: start: 20201127, end: 20201128
  22. CALCIUM CHLORIDE. [Concomitant]
     Active Substance: CALCIUM CHLORIDE
     Indication: HYPOCALCAEMIA
     Dosage: 1 GRAM
     Route: 041
     Dates: start: 20201128, end: 20201128

REACTIONS (3)
  - Multiple organ dysfunction syndrome [Fatal]
  - COVID-19 [Fatal]
  - Respiratory failure [Fatal]

NARRATIVE: CASE EVENT DATE: 20201125
